FAERS Safety Report 19580417 (Version 1)
Quarter: 2021Q3

REPORT INFORMATION
  Report Type: Spontaneous
  Country: US (occurrence: US)
  Receive Date: 20210719
  Receipt Date: 20210719
  Transmission Date: 20211014
  Serious: No
  Sender: FDA-Public Use
  Company Number: NVSC2021US158126

PATIENT
  Sex: Male
  Weight: 81.63 kg

DRUGS (1)
  1. VOTRIENT [Suspect]
     Active Substance: PAZOPANIB HYDROCHLORIDE
     Indication: PRODUCT USED FOR UNKNOWN INDICATION
     Dosage: 600 MG, QD
     Route: 048
     Dates: start: 202106

REACTIONS (4)
  - Weight decreased [Unknown]
  - Muscle spasms [Unknown]
  - Hair colour changes [Unknown]
  - Diarrhoea [Unknown]
